FAERS Safety Report 6655904-6 (Version None)
Quarter: 2010Q1

REPORT INFORMATION
  Report Type: 
  Country: None (occurrence: None)
  Receive Date: 20100326
  Receipt Date: 20100326
  Transmission Date: 20100710
  Serious: Yes (Life-Threatening, Disabling)
  Sender: FDA-Public Use
  Company Number: None

PATIENT
  Sex: Male
  Weight: 77.1115 kg

DRUGS (1)
  1. METFORMIN (GLUCOPHAGE) [Suspect]
     Indication: DIABETES MELLITUS
     Dosage: 1000 MG 1 TABLET TWICE DAILY
     Dates: start: 20010101, end: 20100101

REACTIONS (1)
  - RENAL IMPAIRMENT [None]
